FAERS Safety Report 17461720 (Version 1)
Quarter: 2020Q1

REPORT INFORMATION
  Report Type: Spontaneous
  Country: FR (occurrence: FR)
  Receive Date: 20200226
  Receipt Date: 20200226
  Transmission Date: 20200409
  Serious: Yes (Death, Congenital Anomaly)
  Sender: FDA-Public Use
  Company Number: FR-ACCORD-173506

PATIENT

DRUGS (6)
  1. OMEPRAZOLE. [Suspect]
     Active Substance: OMEPRAZOLE
     Indication: PROPHYLAXIS
     Dosage: THERAPY END DATE: 24-JAN-2020
     Route: 064
     Dates: start: 20191018
  2. TRAMADOL. [Suspect]
     Active Substance: TRAMADOL
     Indication: PAIN
     Dosage: THERAPY END DATE: 24-JAN-2020
     Route: 064
     Dates: start: 20191018
  3. HYDROXYZINE [Suspect]
     Active Substance: HYDROXYZINE HYDROCHLORIDE
     Indication: BIPOLAR DISORDER
     Dosage: THERAPY END DATE: 24-JAN-2020
     Route: 064
     Dates: start: 20191018
  4. VENLAFAXINE/VENLAFAXINE HYDROCHLORIDE [Suspect]
     Active Substance: VENLAFAXINE HYDROCHLORIDE
     Indication: BIPOLAR DISORDER
     Dosage: THERAPY END DATE: 24-JAN-2020
     Route: 064
     Dates: start: 20191018
  5. INSULIN [Suspect]
     Active Substance: INSULIN NOS
     Indication: TYPE 2 DIABETES MELLITUS
     Dosage: THERAPY END DATE: 24-JAN-2020
     Route: 064
     Dates: start: 20191218
  6. QUETIAPINE. [Suspect]
     Active Substance: QUETIAPINE
     Indication: BIPOLAR DISORDER
     Dosage: THERAPY END DATE: 24-JAN-2020
     Route: 064
     Dates: start: 20191018

REACTIONS (5)
  - Foetal exposure during pregnancy [Fatal]
  - Congenital hand malformation [Fatal]
  - Heart disease congenital [Fatal]
  - Congenital central nervous system anomaly [Fatal]
  - Spine malformation [Fatal]

NARRATIVE: CASE EVENT DATE: 20191227
